FAERS Safety Report 17790346 (Version 1)
Quarter: 2020Q2

REPORT INFORMATION
  Report Type: Spontaneous
  Country: FR (occurrence: FR)
  Receive Date: 20200514
  Receipt Date: 20200514
  Transmission Date: 20200714
  Serious: Yes (Death)
  Sender: FDA-Public Use
  Company Number: FR-ELI_LILLY_AND_COMPANY-FR202005003388

PATIENT
  Age: 47 Year
  Sex: Male
  Weight: 134 kg

DRUGS (8)
  1. NOVORAPID [Suspect]
     Active Substance: INSULIN ASPART
     Indication: TYPE 2 DIABETES MELLITUS
     Dosage: PROTOCOLE
     Route: 058
     Dates: start: 20200327, end: 20200330
  2. TENOFOVIR DISOPROXIL [Concomitant]
     Active Substance: TENOFOVIR DISOPROXIL
     Indication: HEPATITIS B VIRUS TEST POSITIVE
     Route: 048
     Dates: end: 20200330
  3. TRAMADOL. [Suspect]
     Active Substance: TRAMADOL
     Indication: GAIT DISTURBANCE
     Route: 048
     Dates: start: 20200314, end: 20200330
  4. TOPALGIC LP [Suspect]
     Active Substance: TRAMADOL HYDROCHLORIDE
     Indication: GAIT DISTURBANCE
     Dosage: 1 DOSAGE FORM, UNKNOWN
     Route: 048
     Dates: end: 20200330
  5. TIXTAR [Concomitant]
     Active Substance: RIFAXIMIN
     Indication: HEPATIC CIRRHOSIS
     Route: 048
     Dates: end: 20200330
  6. PHOSPHONEUROS [Concomitant]
     Active Substance: CALCIUM PHOSPHATE, DIBASIC, ANHYDROUS\MAGNESIUM GLYCEROPHOSPHATE\PHOSPHORIC ACID\SODIUM PHOSPHATE, DIBASIC
     Indication: PRODUCT USED FOR UNKNOWN INDICATION
     Route: 048
     Dates: end: 20200330
  7. DUPHALAC EASY [Concomitant]
     Active Substance: LACTULOSE
     Indication: PRODUCT USED FOR UNKNOWN INDICATION
     Route: 048
     Dates: end: 20200330
  8. ABASAGLAR [Suspect]
     Active Substance: INSULIN GLARGINE
     Indication: TYPE 2 DIABETES MELLITUS
     Route: 058
     Dates: start: 20200320, end: 20200330

REACTIONS (2)
  - Multiple organ dysfunction syndrome [Fatal]
  - Hypoglycaemia [Fatal]

NARRATIVE: CASE EVENT DATE: 20200330
